FAERS Safety Report 7551460-9 (Version None)
Quarter: 2011Q2

REPORT INFORMATION
  Report Type: 
  Country: None (occurrence: None)
  Receive Date: 20110616
  Receipt Date: 20110602
  Transmission Date: 20111010
  Serious: Yes (Life-Threatening, Other)
  Sender: FDA-Public Use
  Company Number: CA-JNJFOC-20101206816

PATIENT
  Sex: Male
  Weight: 64.86 kg

DRUGS (2)
  1. PREDNISONE [Concomitant]
  2. REMICADE [Suspect]
     Indication: COLITIS ULCERATIVE
     Dosage: RECEIVED 5 INFUSIONS
     Route: 042
     Dates: start: 20091229, end: 20100805

REACTIONS (2)
  - DRUG INEFFECTIVE [None]
  - HEPATOSPLENIC T-CELL LYMPHOMA [None]
